FAERS Safety Report 8585306-7 (Version None)
Quarter: 2012Q3

REPORT INFORMATION
  Report Type: 
  Country: None (occurrence: None)
  Receive Date: 20120810
  Receipt Date: 20120806
  Transmission Date: 20120928
  Serious: Yes (Death)
  Sender: FDA-Public Use
  Company Number: PHHO2011US020331

PATIENT
  Sex: Female
  Weight: 101.4 kg

DRUGS (3)
  1. GILENYA [Suspect]
     Indication: RELAPSING-REMITTING MULTIPLE SCLEROSIS
     Dosage: 0.5 MG, QD
     Route: 048
     Dates: start: 20110614, end: 20111201
  2. TRAMADOL HCL [Concomitant]
     Indication: OSTEOARTHRITIS
     Dosage: 50 MG, QD
     Dates: start: 20100101
  3. GABAPENTIN [Concomitant]
     Indication: OSTEOARTHRITIS
     Dosage: 600 MG, QD
     Dates: start: 19990901

REACTIONS (1)
  - DEATH [None]
